FAERS Safety Report 14339152 (Version 2)
Quarter: 2018Q1

REPORT INFORMATION
  Report Type: Spontaneous
  Country: US (occurrence: US)
  Receive Date: 20171230
  Receipt Date: 20180201
  Transmission Date: 20180509
  Serious: No
  Sender: FDA-Public Use
  Company Number: US-CELGENEUS-USA-20171210961

PATIENT
  Sex: Female
  Weight: 64.01 kg

DRUGS (2)
  1. REVLIMID [Suspect]
     Active Substance: LENALIDOMIDE
     Dosage: 10 MILLIGRAM
     Route: 048
     Dates: start: 201509
  2. REVLIMID [Suspect]
     Active Substance: LENALIDOMIDE
     Indication: PLASMA CELL MYELOMA
     Route: 048
     Dates: start: 201505

REACTIONS (5)
  - Sputum discoloured [Unknown]
  - Nasopharyngitis [Unknown]
  - Pyrexia [Unknown]
  - Productive cough [Unknown]
  - Dysphonia [Unknown]
